FAERS Safety Report 7540202-9 (Version None)
Quarter: 2011Q2

REPORT INFORMATION
  Report Type: 
  Country: None (occurrence: None)
  Receive Date: 20110610
  Receipt Date: 20110606
  Transmission Date: 20111010
  Serious: Yes (Death, Other)
  Sender: FDA-Public Use
  Company Number: FR-JNJFOC-20110602381

PATIENT
  Sex: Male
  Weight: 68 kg

DRUGS (6)
  1. ABIRATERONE ACETATE [Suspect]
     Route: 048
  2. ABIRATERONE ACETATE [Suspect]
     Indication: PROSTATE CANCER
     Route: 048
     Dates: start: 20110419, end: 20110509
  3. ESCITALOPRAM [Concomitant]
     Indication: DEPRESSION
     Route: 048
     Dates: start: 20110401
  4. PREDNISOLONE [Suspect]
     Indication: PROSTATE CANCER
     Route: 048
     Dates: start: 20110401
  5. LYRICA [Concomitant]
     Indication: NEUROPATHY PERIPHERAL
     Route: 048
     Dates: start: 20110301
  6. MORPHINE [Concomitant]
     Indication: PAIN
     Route: 042
     Dates: start: 20110301

REACTIONS (5)
  - HYPOXIA [None]
  - PULMONARY ARTERIAL HYPERTENSION [None]
  - RESPIRATORY DISTRESS [None]
  - BLOOD ALKALINE PHOSPHATASE INCREASED [None]
  - THROMBOCYTOPENIA [None]
